FAERS Safety Report 17988171 (Version 1)
Quarter: 2020Q3

REPORT INFORMATION
  Report Type: Spontaneous
  Country: US (occurrence: US)
  Receive Date: 20200707
  Receipt Date: 20200707
  Transmission Date: 20201103
  Serious: No
  Sender: FDA-Public Use
  Company Number: US-TEVA-2020-US-1797119

PATIENT
  Age: 80 Year
  Sex: Male

DRUGS (1)
  1. METOCLOPRAMIDE. [Suspect]
     Active Substance: METOCLOPRAMIDE
     Indication: NAUSEA
     Dosage: 10 MILLIGRAM DAILY;
     Route: 065
     Dates: start: 20200629

REACTIONS (9)
  - Product quality issue [Unknown]
  - Heart rate increased [Unknown]
  - Hypertension [Unknown]
  - Middle insomnia [Unknown]
  - Cognitive disorder [Unknown]
  - Product substitution issue [Unknown]
  - Night blindness [Unknown]
  - Feeling abnormal [Unknown]
  - Vision blurred [Unknown]

NARRATIVE: CASE EVENT DATE: 20200629
